FAERS Safety Report 6528240-6 (Version None)
Quarter: 2010Q1

REPORT INFORMATION
  Report Type: 
  Country: None (occurrence: None)
  Receive Date: 20100105
  Receipt Date: 20100105
  Transmission Date: 20100710
  Serious: Yes (Hospitalization)
  Sender: FDA-Public Use
  Company Number: None

PATIENT
  Sex: Female
  Weight: 65.953 kg

DRUGS (13)
  1. ABRAXANE [Suspect]
     Indication: BREAST CANCER METASTATIC
     Dosage: 314 MG Q 3 WEEKS IV DRIP
     Route: 041
     Dates: start: 20090831, end: 20091209
  2. BEVACIZUMAB 400 MG/VIAL GENENTECH [Suspect]
     Indication: BREAST CANCER METASTATIC
     Dosage: 1035 MG Q 3 WEEKS IV DRIP
     Route: 041
     Dates: start: 20090831, end: 20091209
  3. QUINAPRIL [Concomitant]
  4. SIMVASTAIN [Concomitant]
  5. MULTI-VITAMIN [Concomitant]
  6. POTASSIUM [Concomitant]
  7. OMEPRAZOLE [Concomitant]
  8. REGLAN [Concomitant]
  9. ARANESP [Concomitant]
  10. ZOFRAN [Concomitant]
  11. NEURONTIN [Concomitant]
  12. PAMIDRONATE DISODIUM [Concomitant]
  13. NEULASTA [Concomitant]

REACTIONS (1)
  - PANCREATITIS ACUTE [None]
